FAERS Safety Report 11992810 (Version 1)
Quarter: 2016Q1

REPORT INFORMATION
  Report Type: Report from Study
  Country: US (occurrence: US)
  Receive Date: 20160203
  Receipt Date: 20160203
  Transmission Date: 20160526
  Serious: Yes (Other)
  Sender: FDA-Public Use
  Company Number: US-UCBSA-2015021770

PATIENT
  Sex: Female

DRUGS (3)
  1. LEVETIRACETAM. [Suspect]
     Active Substance: LEVETIRACETAM
     Indication: SEIZURE
     Dosage: 500 MG A DAY
  2. LAMICTAL [Concomitant]
     Active Substance: LAMOTRIGINE
     Indication: SEIZURE
     Dosage: 300 MG, 2X/DAY (BID)
     Dates: start: 2007
  3. LAMICTAL [Concomitant]
     Active Substance: LAMOTRIGINE
     Dosage: DOSE INCREASED

REACTIONS (7)
  - Weight increased [Unknown]
  - Anger [Recovering/Resolving]
  - Abnormal behaviour [Unknown]
  - Contusion [Unknown]
  - Seizure [Unknown]
  - Myoclonic epilepsy [Unknown]
  - Drug ineffective [Unknown]
